FAERS Safety Report 15076370 (Version 1)
Quarter: 2018Q3

REPORT INFORMATION
  Report Type: Spontaneous
  Country: JP (occurrence: ZA)
  Receive Date: 20180627
  Receipt Date: 20180627
  Transmission Date: 20181010
  Serious: Yes (Death)
  Sender: FDA-Public Use
  Company Number: ZA-JACOBUS PHARMACEUTICAL COMPANY, INC.-2050053

PATIENT
  Age: 48 Year
  Sex: Male
  Weight: 50.14 kg

DRUGS (6)
  1. BEDAQUILINE [Suspect]
     Active Substance: BEDAQUILINE
     Dates: start: 20180515
  2. PASER [Suspect]
     Active Substance: AMINOSALICYLIC ACID
     Indication: TUBERCULOSIS
     Dates: start: 20180515
  3. LEVOFLOXACIN. [Suspect]
     Active Substance: LEVOFLOXACIN
  4. LINEZOLID. [Suspect]
     Active Substance: LINEZOLID
  5. DELAMANID [Suspect]
     Active Substance: DELAMANID
  6. CLOFAZIMINE [Suspect]
     Active Substance: CLOFAZIMINE

REACTIONS (1)
  - Tuberculosis [Fatal]
